FAERS Safety Report 6228140-5 (Version None)
Quarter: 2009Q2

REPORT INFORMATION
  Report Type: 
  Country: None (occurrence: None)
  Receive Date: 20090612
  Receipt Date: 20090605
  Transmission Date: 20091009
  Serious: Yes (Other)
  Sender: FDA-Public Use
  Company Number: US-AVENTIS-200915864GDDC

PATIENT
  Age: 50 Year
  Sex: Female
  Weight: 74.39 kg

DRUGS (4)
  1. DOCETAXEL [Suspect]
     Route: 042
     Dates: start: 20090217
  2. CYTOXAN [Suspect]
     Route: 042
     Dates: start: 20090217
  3. ADRIAMYCIN PFS [Suspect]
     Route: 042
     Dates: start: 20090217
  4. TRIAMTERENE AND HYDROCHLOROTHIAZIDE [Suspect]
     Indication: HYPERTENSION
     Dosage: DOSE: 75/50
     Route: 048
     Dates: start: 20090127, end: 20090603

REACTIONS (2)
  - BLOOD POTASSIUM DECREASED [None]
  - PALPITATIONS [None]
